FAERS Safety Report 23952804 (Version 1)
Quarter: 2024Q2

REPORT INFORMATION
  Report Type: Spontaneous
  Country: US (occurrence: None)
  Receive Date: 20240607
  Receipt Date: 20240607
  Transmission Date: 20240717
  Serious: Yes (Hospitalization)
  Sender: FDA-Public Use
  Company Number: None

PATIENT
  Age: 64 Year
  Sex: Male

DRUGS (12)
  1. MYCOPHENOLIC ACID [Suspect]
     Active Substance: MYCOPHENOLIC ACID
     Indication: Heart transplant
     Dosage: 1000 MG DAILY ORAL
     Route: 048
     Dates: start: 20240328
  2. TACROLIMUS [Suspect]
     Active Substance: TACROLIMUS
     Indication: Heart transplant
     Dosage: 3 MG DAILY ORAL
     Route: 048
     Dates: start: 20240328
  3. PREDNISONE [Concomitant]
  4. BUMETANIDE [Concomitant]
  5. ROSUVASTATIN [Concomitant]
  6. VALGANCICLOVIR [Concomitant]
  7. FAMOTIDINE [Concomitant]
  8. AMLODIPINE BESYLATE [Concomitant]
  9. BACTRIM [Concomitant]
  10. QUETIAPINE [Concomitant]
  11. POSACONAZOLE [Concomitant]
  12. mag-oxide [Concomitant]

REACTIONS (2)
  - Malaise [None]
  - Fluid retention [None]

NARRATIVE: CASE EVENT DATE: 20240531
